FAERS Safety Report 7529822-5 (Version None)
Quarter: 2011Q2

REPORT INFORMATION
  Report Type: 
  Country: None (occurrence: None)
  Receive Date: 20110607
  Receipt Date: 20110603
  Transmission Date: 20111010
  Serious: Yes (Other)
  Sender: FDA-Public Use
  Company Number: CA-JNJFOC-20110401930

PATIENT
  Sex: Male
  Weight: 112 kg

DRUGS (7)
  1. REMICADE [Suspect]
     Indication: CROHN'S DISEASE
     Route: 042
     Dates: start: 20060201
  2. LORAZEPAM [Concomitant]
     Dosage: PRN
     Route: 065
  3. PERCOCET [Concomitant]
     Indication: ARTHRALGIA
     Dosage: PRN
     Route: 065
  4. PERCOCET [Concomitant]
     Indication: BACK PAIN
     Dosage: PRN
     Route: 065
  5. OXYCONTIN [Concomitant]
     Indication: ARTHRALGIA
     Dosage: PRN
     Route: 065
  6. CIPROFLOXACIN HCL [Concomitant]
     Route: 065
  7. CEFUROXIME [Concomitant]
     Route: 048

REACTIONS (2)
  - CHEST DISCOMFORT [None]
  - TOOTH DISORDER [None]
